FAERS Safety Report 4706946-9 (Version None)
Quarter: 2005Q3

REPORT INFORMATION
  Report Type: 
  Country: None (occurrence: None)
  Receive Date: 20050706
  Receipt Date: 20050628
  Transmission Date: 20060218
  Serious: Yes (Death, Hospitalization)
  Sender: FDA-Public Use
  Company Number: PHBS2005JP09283

PATIENT
  Age: 79 Year
  Sex: Female

DRUGS (4)
  1. TEGRETOL [Suspect]
     Dosage: 400 MG/DAY
     Route: 048
  2. ARICEPT [Suspect]
     Route: 065
  3. LUVOX [Concomitant]
  4. ALPRAZOLAM [Concomitant]

REACTIONS (4)
  - BLOOD CREATINE PHOSPHOKINASE INCREASED [None]
  - HYPOKINESIA [None]
  - PYREXIA [None]
  - RENAL FAILURE ACUTE [None]
